FAERS Safety Report 16535618 (Version 1)
Quarter: 2019Q3

REPORT INFORMATION
  Report Type: Spontaneous
  Country: US (occurrence: US)
  Receive Date: 20190705
  Receipt Date: 20190705
  Transmission Date: 20191004
  Serious: No
  Sender: FDA-Public Use
  Company Number: US-PFIZER INC-2019276564

PATIENT
  Age: 80 Year
  Sex: Male

DRUGS (6)
  1. COREG [Suspect]
     Active Substance: CARVEDILOL
     Dosage: UNK
  2. VALIUM [Suspect]
     Active Substance: DIAZEPAM
     Dosage: UNK
  3. HYDROCODONE [Suspect]
     Active Substance: HYDROCODONE
     Dosage: UNK
  4. SIMVASTATIN. [Suspect]
     Active Substance: SIMVASTATIN
     Dosage: UNK
  5. INDERAL [Suspect]
     Active Substance: PROPRANOLOL HYDROCHLORIDE
     Dosage: UNK
  6. HYDRALAZINE [Suspect]
     Active Substance: HYDRALAZINE HYDROCHLORIDE
     Dosage: UNK

REACTIONS (1)
  - Drug hypersensitivity [Unknown]
